FAERS Safety Report 8438250-X (Version None)
Quarter: 2012Q2

REPORT INFORMATION
  Report Type: 
  Country: None (occurrence: None)
  Receive Date: 20120614
  Receipt Date: 20120601
  Transmission Date: 20120825
  Serious: No
  Sender: FDA-Public Use
  Company Number: US-ASTRAZENECA-2012SE36305

PATIENT
  Sex: Male

DRUGS (2)
  1. SYMBICORT [Suspect]
     Indication: INFLAMMATION
     Dosage: 160/4.5 MCG, 2 PUFFS BID
     Route: 055
     Dates: start: 20110211
  2. SYMBICORT [Suspect]
     Indication: ASTHMA
     Dosage: 160/4.5 MCG, 2 PUFFS BID
     Route: 055
     Dates: start: 20110211

REACTIONS (6)
  - MALAISE [None]
  - DYSPNOEA [None]
  - BREATHING-RELATED SLEEP DISORDER [None]
  - DRUG DOSE OMISSION [None]
  - SLEEP DISORDER [None]
  - DIZZINESS [None]
